FAERS Safety Report 9123859 (Version 2)
Quarter: 2013Q1

REPORT INFORMATION
  Report Type: Spontaneous
  Country: US (occurrence: US)
  Receive Date: 20130227
  Receipt Date: 20130313
  Transmission Date: 20140127
  Serious: No
  Sender: FDA-Public Use
  Company Number: US-BAYER-2013-018749

PATIENT
  Age: 60 Year
  Sex: 0

DRUGS (1)
  1. GADAVIST [Suspect]

REACTIONS (3)
  - Eye swelling [None]
  - Nasal oedema [None]
  - Upper respiratory tract congestion [None]
